FAERS Safety Report 6538648-0 (Version None)
Quarter: 2010Q1

REPORT INFORMATION
  Report Type: 
  Country: None (occurrence: None)
  Receive Date: 20100115
  Receipt Date: 20100107
  Transmission Date: 20100710
  Serious: Yes (Hospitalization)
  Sender: FDA-Public Use
  Company Number: US-BIOGENIDEC-2009BI041654

PATIENT
  Age: 58 Year
  Sex: Female

DRUGS (20)
  1. TYSABRI [Suspect]
     Indication: MULTIPLE SCLEROSIS
     Route: 042
     Dates: start: 20070821
  2. BACLOFEN [Concomitant]
  3. BACLOFEN [Concomitant]
  4. KEPPRA [Concomitant]
  5. LYRICA [Concomitant]
     Indication: ABDOMINAL PAIN
  6. LYRICA [Concomitant]
     Indication: BACK PAIN
  7. LYRICA [Concomitant]
     Indication: NECK PAIN
  8. LYRICA [Concomitant]
     Indication: DYSAESTHESIA
  9. PROVIGIL [Concomitant]
  10. SERTRALINE HCL [Concomitant]
  11. PANTOPRAZOLE [Concomitant]
  12. POLYETHYLENE GLYCOL [Concomitant]
  13. ESTRACE [Concomitant]
  14. TRIMETHOBENZAMIDE HCL [Concomitant]
  15. VITAMIN D [Concomitant]
  16. VITAMIN B COMPLEX CAP [Concomitant]
  17. LACTASE [Concomitant]
  18. MULTI-VITAMIN [Concomitant]
  19. OMEGA 3 ACIDS [Concomitant]
  20. CITRUCEL [Concomitant]

REACTIONS (4)
  - ANAEMIA [None]
  - FATIGUE [None]
  - NAUSEA [None]
  - SECONDARY PROGRESSIVE MULTIPLE SCLEROSIS [None]
